FAERS Safety Report 9906893 (Version 1)
Quarter: 2014Q1

REPORT INFORMATION
  Report Type: Spontaneous
  Country: CA (occurrence: CA)
  Receive Date: 20140218
  Receipt Date: 20140218
  Transmission Date: 20141002
  Serious: Yes (Other)
  Sender: FDA-Public Use
  Company Number: CA-LUNDBECK-DKLU1097548

PATIENT
  Sex: 0

DRUGS (1)
  1. VIGABATRIN [Suspect]
     Indication: INFANTILE SPASMS

REACTIONS (1)
  - Retinal disorder [Unknown]
